FAERS Safety Report 7232520-9 (Version None)
Quarter: 2011Q1

REPORT INFORMATION
  Report Type: 
  Country: None (occurrence: None)
  Receive Date: 20110107
  Receipt Date: 20101222
  Transmission Date: 20110831
  Serious: Yes (Other)
  Sender: FDA-Public Use
  Company Number: ALA_01201_2010

PATIENT
  Sex: Female

DRUGS (9)
  1. ZOLOFT [Concomitant]
  2. DIPHENHYDRAMINE [Concomitant]
  3. AMITRIPTYLINE HCL [Concomitant]
  4. NO-DOZ [Concomitant]
  5. REGLAN [Suspect]
     Indication: GASTRITIS
     Dosage: (10 MG QID ORAL)
     Route: 048
     Dates: start: 20071001, end: 20090501
  6. REGLAN [Suspect]
     Indication: NAUSEA
     Dosage: (10 MG QID ORAL)
     Route: 048
     Dates: start: 20071001, end: 20090501
  7. METHADONE [Concomitant]
  8. LEXAPRO [Concomitant]
  9. EFFEXOR [Concomitant]

REACTIONS (5)
  - EMOTIONAL DISORDER [None]
  - INJURY [None]
  - TARDIVE DYSKINESIA [None]
  - ECONOMIC PROBLEM [None]
  - SWOLLEN TONGUE [None]
